FAERS Safety Report 24782118 (Version 1)
Quarter: 2024Q4

REPORT INFORMATION
  Report Type: Spontaneous
  Country: DE (occurrence: None)
  Receive Date: 20241226
  Receipt Date: 20241226
  Transmission Date: 20250114
  Serious: Yes (Other)
  Sender: Public
  Company Number: None

PATIENT
  Age: 34 Year
  Sex: Male
  Weight: 90 kg

DRUGS (1)
  1. LEXAPRO [Suspect]
     Active Substance: ESCITALOPRAM OXALATE
     Indication: Depression
     Dosage: OTHER QUANTITY : 1 TABLET(S);?FREQUENCY : DAILY;?
     Route: 048
     Dates: start: 20200315, end: 20201015

REACTIONS (6)
  - Sexual dysfunction [None]
  - Loss of libido [None]
  - Erectile dysfunction [None]
  - Premature ejaculation [None]
  - Genital paraesthesia [None]
  - Sexual dysfunction [None]

NARRATIVE: CASE EVENT DATE: 20201016
